FAERS Safety Report 5540806-9 (Version None)
Quarter: 2007Q4

REPORT INFORMATION
  Report Type: 
  Country: None (occurrence: None)
  Receive Date: 20071129
  Receipt Date: 20070813
  Transmission Date: 20080405
  Serious: Yes (Other)
  Sender: FDA-Public Use
  Company Number: US200708002668

PATIENT
  Sex: Female

DRUGS (6)
  1. ZYPREXA [Suspect]
     Dosage: 5 MG, DAILY (1/D),
  2. RISPERIDONE [Concomitant]
  3. EFFEXOR [Concomitant]
  4. LAMICTAL [Concomitant]
  5. WELLBUTRIN [Concomitant]
  6. RESTORIL [Concomitant]

REACTIONS (2)
  - ALANINE AMINOTRANSFERASE INCREASED [None]
  - ASPARTATE AMINOTRANSFERASE INCREASED [None]
